FAERS Safety Report 6673444-5 (Version None)
Quarter: 2010Q1

REPORT INFORMATION
  Report Type: 
  Country: None (occurrence: None)
  Receive Date: 20100329
  Receipt Date: 20090901
  Transmission Date: 20100710
  Serious: Yes (Other)
  Sender: FDA-Public Use
  Company Number: 2009266882

PATIENT
  Age: 47 Year
  Sex: Female

DRUGS (2)
  1. GEODON [Suspect]
     Indication: AFFECTIVE DISORDER
     Dosage: FREQUENCY: 2X DAY,, ORAL
     Route: 048
     Dates: start: 20090811
  2. XANAX [Concomitant]

REACTIONS (2)
  - DROOLING [None]
  - SWOLLEN TONGUE [None]
